FAERS Safety Report 8265729-6 (Version None)
Quarter: 2012Q2

REPORT INFORMATION
  Report Type: 
  Country: None (occurrence: None)
  Receive Date: 20120406
  Receipt Date: 20120403
  Transmission Date: 20120825
  Serious: Yes (Other)
  Sender: FDA-Public Use
  Company Number: US-PFIZER INC-2012084530

PATIENT
  Sex: Female

DRUGS (1)
  1. PREPARATION H [Suspect]
     Indication: HAEMORRHOIDS
     Dosage: UNK

REACTIONS (4)
  - APPLICATION SITE PAIN [None]
  - BURNING SENSATION [None]
  - GASTROINTESTINAL DISORDER [None]
  - ANORECTAL DISORDER [None]
